FAERS Safety Report 5528636-5 (Version None)
Quarter: 2007Q4

REPORT INFORMATION
  Report Type: 
  Country: None (occurrence: None)
  Receive Date: 20071116
  Receipt Date: 20061005
  Transmission Date: 20080405
  Serious: Yes (Other)
  Sender: FDA-Public Use
  Company Number: 2006123257

PATIENT
  Age: 42 Year
  Sex: Female
  Weight: 61.2356 kg

DRUGS (2)
  1. CLEOCIN [Suspect]
     Indication: INFECTION PROPHYLAXIS
     Dosage: 225MG/15ML (3 IN 1 D),ORAL
     Route: 048
     Dates: start: 20060814, end: 20060816
  2. DEMEROL [Concomitant]

REACTIONS (1)
  - HYPERSENSITIVITY [None]
